FAERS Safety Report 4466934-7 (Version None)
Quarter: 2004Q3

REPORT INFORMATION
  Report Type: 
  Country: None (occurrence: None)
  Receive Date: 20040930
  Receipt Date: 20040930
  Transmission Date: 20050211
  Serious: Yes (Hospitalization)
  Sender: FDA-Public Use
  Company Number: None

PATIENT
  Age: 42 Year
  Sex: Female
  Weight: 63.5 kg

DRUGS (4)
  1. TENECTEPLASE [Suspect]
     Indication: DEEP VEIN THROMBOSIS
     Dosage: 10 MG/500ML 25 U/HR RUNNING 2 DIFFERENT LINES @ THIS RATE
     Dates: start: 20040421, end: 20040422
  2. HEPARIN [Suspect]
     Indication: DEEP VEIN THROMBOSIS
     Dosage: 500 U/HR
     Dates: start: 20040421, end: 20040422
  3. HYDROMORPHINE [Concomitant]
  4. WARFARIN SODIUM [Concomitant]

REACTIONS (5)
  - BLOOD PRESSURE DECREASED [None]
  - HAEMATOCRIT DECREASED [None]
  - HAEMOGLOBIN DECREASED [None]
  - HEART RATE INCREASED [None]
  - INTRA-ABDOMINAL HAEMORRHAGE [None]
